FAERS Safety Report 5480750-9 (Version None)
Quarter: 2007Q3

REPORT INFORMATION
  Report Type: 
  Country: None (occurrence: None)
  Receive Date: 20070913
  Receipt Date: 20070425
  Transmission Date: 20080115
  Serious: Yes (Other)
  Sender: FDA-Public Use
  Company Number: PHEH2007US06417

PATIENT
  Age: 80 Year
  Sex: Male

DRUGS (2)
  1. DIOVAN [Suspect]
     Indication: HYPERTENSION
     Dosage: 80 MG, QD, ORAL
     Route: 048
     Dates: end: 20070423
  2. TOPROL-XL [Concomitant]

REACTIONS (5)
  - DIZZINESS [None]
  - FLUID RETENTION [None]
  - HYPOTENSION [None]
  - JAUNDICE [None]
  - RHINORRHOEA [None]
